FAERS Safety Report 26213044 (Version 1)
Quarter: 2025Q4

REPORT INFORMATION
  Report Type: Spontaneous
  Country: LB (occurrence: LB)
  Receive Date: 20251230
  Receipt Date: 20251230
  Transmission Date: 20260118
  Serious: Yes (Death, Other)
  Sender: AMGEN
  Company Number: LB-AMGEN-LBNSP2025255704

PATIENT
  Age: 5 Year
  Sex: Male

DRUGS (9)
  1. BLINATUMOMAB [Suspect]
     Active Substance: BLINATUMOMAB
     Indication: B-cell type acute leukaemia
     Route: 065
  2. DAUNORUBICIN [Concomitant]
     Active Substance: DAUNORUBICIN
  3. VINCRISTINE [Concomitant]
     Active Substance: VINCRISTINE
  4. ASPARAGINASE [Concomitant]
     Active Substance: ASPARAGINASE
  5. PREDNISONE [Concomitant]
     Active Substance: PREDNISONE
  6. CYTARABINE [Concomitant]
     Active Substance: CYTARABINE
     Dosage: UNK
     Route: 029
  7. METHOTREXATE [Concomitant]
     Active Substance: METHOTREXATE
  8. CYCLOPHOSPHAMIDE [Concomitant]
     Active Substance: CYCLOPHOSPHAMIDE
  9. ETOPOSIDE [Concomitant]
     Active Substance: ETOPOSIDE

REACTIONS (4)
  - Death [Fatal]
  - Acute lymphocytic leukaemia recurrent [Unknown]
  - Neutropenia [Unknown]
  - Bacterial sepsis [Unknown]
